APPROVED DRUG PRODUCT: LEVALBUTEROL HYDROCHLORIDE
Active Ingredient: LEVALBUTEROL HYDROCHLORIDE
Strength: EQ 0.042% BASE
Dosage Form/Route: SOLUTION;INHALATION
Application: A207625 | Product #003 | TE Code: AN
Applicant: LUOXIN AUROVITAS PHARMA CHENGDU CO LTD
Approved: Dec 30, 2016 | RLD: No | RS: No | Type: RX